FAERS Safety Report 12519343 (Version 4)
Quarter: 2017Q3

REPORT INFORMATION
  Report Type: Spontaneous
  Country: GB (occurrence: GB)
  Receive Date: 20160701
  Receipt Date: 20170927
  Transmission Date: 20171127
  Serious: Yes (Hospitalization, Other)
  Sender: FDA-Public Use
  Company Number: GB-ROCHE-1612590

PATIENT
  Age: 58 Year
  Sex: Female

DRUGS (14)
  1. ALIMTA [Suspect]
     Active Substance: PEMETREXED DISODIUM
     Indication: PRODUCT USED FOR UNKNOWN INDICATION
     Route: 065
  2. XGEVA [Suspect]
     Active Substance: DENOSUMAB
     Indication: PRODUCT USED FOR UNKNOWN INDICATION
     Route: 058
  3. ALCOHOL. [Suspect]
     Active Substance: ALCOHOL
     Indication: PRODUCT USED FOR UNKNOWN INDICATION
     Route: 065
  4. ALCOHOL GEL [Concomitant]
  5. APREPITANT. [Suspect]
     Active Substance: APREPITANT
     Indication: PRODUCT USED FOR UNKNOWN INDICATION
     Route: 065
  6. CISPLATIN. [Concomitant]
     Active Substance: CISPLATIN
  7. ZOMETA [Concomitant]
     Active Substance: ZOLEDRONIC ACID
  8. CLEXANE [Suspect]
     Active Substance: ENOXAPARIN SODIUM
     Indication: THROMBOSIS
     Route: 065
  9. AVASTIN [Suspect]
     Active Substance: BEVACIZUMAB
     Indication: PRODUCT USED FOR UNKNOWN INDICATION
     Dosage: RECENT DOSE: 525 MG
     Route: 042
  10. PEMETREXED. [Suspect]
     Active Substance: PEMETREXED
     Indication: PRODUCT USED FOR UNKNOWN INDICATION
     Route: 042
  11. METOCLOPRAMID [Concomitant]
     Active Substance: METOCLOPRAMIDE
     Dosage: 20 MG, UNK
     Route: 042
  12. VITAMIN B12 [Concomitant]
     Active Substance: CYANOCOBALAMIN
  13. NEULASTA [Concomitant]
     Active Substance: PEGFILGRASTIM
  14. DENOSUMAB [Concomitant]
     Active Substance: DENOSUMAB
     Route: 058

REACTIONS (53)
  - Haemoglobin decreased [Unknown]
  - Blood urine present [Unknown]
  - Chest pain [Unknown]
  - Headache [Unknown]
  - Nausea [Unknown]
  - Musculoskeletal stiffness [Unknown]
  - Urinary tract obstruction [Unknown]
  - Pulmonary thrombosis [Unknown]
  - Neuropathy peripheral [Recovered/Resolved]
  - Dry mouth [Unknown]
  - Oropharyngeal pain [Unknown]
  - Mouth ulceration [Recovered/Resolved]
  - Arthralgia [Unknown]
  - Non-cardiac chest pain [Unknown]
  - Diarrhoea [Unknown]
  - Buccal mucosal roughening [Unknown]
  - Alopecia [Unknown]
  - Pain in extremity [Not Recovered/Not Resolved]
  - Tearfulness [Unknown]
  - Rash [Recovered/Resolved]
  - Sinusitis [Not Recovered/Not Resolved]
  - Rash macular [Unknown]
  - Musculoskeletal discomfort [Unknown]
  - Hot flush [Unknown]
  - Dysgeusia [Not Recovered/Not Resolved]
  - Muscle tightness [Recovering/Resolving]
  - Decreased appetite [Unknown]
  - Dysphonia [Unknown]
  - Restlessness [Unknown]
  - Anxiety [Unknown]
  - Back pain [Unknown]
  - Musculoskeletal chest pain [Unknown]
  - Thirst [Unknown]
  - Asthenia [Unknown]
  - Poor quality sleep [Recovered/Resolved]
  - Paraesthesia [Recovered/Resolved]
  - Erythema [Unknown]
  - Confusional state [Unknown]
  - Weight decreased [Unknown]
  - Joint deposit [Unknown]
  - Device occlusion [Unknown]
  - Abdominal pain upper [Unknown]
  - Constipation [Not Recovered/Not Resolved]
  - Dry skin [Not Recovered/Not Resolved]
  - Tongue ulceration [Recovered/Resolved]
  - Lacrimation increased [Recovered/Resolved]
  - Insomnia [Unknown]
  - Hypertension [Unknown]
  - Productive cough [Recovering/Resolving]
  - Viral infection [Unknown]
  - Flatulence [Unknown]
  - Fatigue [Unknown]
  - Epistaxis [Unknown]

NARRATIVE: CASE EVENT DATE: 20160211
